FAERS Safety Report 12900095 (Version 4)
Quarter: 2016Q4

REPORT INFORMATION
  Report Type: Report from Study
  Country: CO (occurrence: CO)
  Receive Date: 20161101
  Receipt Date: 20161219
  Transmission Date: 20170207
  Serious: Yes (Hospitalization, Other)
  Sender: FDA-Public Use
  Company Number: PHHY2016CO149950

PATIENT
  Age: 23 Year
  Sex: Male
  Weight: 68 kg

DRUGS (3)
  1. EXJADE [Suspect]
     Active Substance: DEFERASIROX
     Indication: SICKLE CELL ANAEMIA
     Dosage: 500 MG, TID
     Route: 048
     Dates: start: 20070929, end: 201604
  2. HYDROXYUREA. [Concomitant]
     Active Substance: HYDROXYUREA
     Indication: PRODUCT USED FOR UNKNOWN INDICATION
     Route: 065
  3. FOLIC ACID. [Concomitant]
     Active Substance: FOLIC ACID
     Indication: PRODUCT USED FOR UNKNOWN INDICATION
     Route: 065

REACTIONS (18)
  - Sickle cell anaemia with crisis [Unknown]
  - Ascites [Unknown]
  - Pyrexia [Unknown]
  - Headache [Unknown]
  - Disease recurrence [Unknown]
  - Seizure [Unknown]
  - Diarrhoea [Unknown]
  - Cerebrovascular accident [Unknown]
  - Abdominal pain [Unknown]
  - General physical health deterioration [Unknown]
  - Jaundice [Unknown]
  - Yellow skin [Unknown]
  - Liver disorder [Unknown]
  - Vomiting [Unknown]
  - Hepatomegaly [Unknown]
  - Renal disorder [Unknown]
  - Blood bilirubin increased [Unknown]
  - Haemolysis [Unknown]

NARRATIVE: CASE EVENT DATE: 20161018
